FAERS Safety Report 19085963 (Version 3)
Quarter: 2021Q2

REPORT INFORMATION
  Report Type: Report from Study
  Country: JP (occurrence: JP)
  Receive Date: 20210402
  Receipt Date: 20210511
  Transmission Date: 20210717
  Serious: Yes (Other)
  Sender: FDA-Public Use
  Company Number: JP-KYOWAKIRIN-2021AKK000972

PATIENT

DRUGS (6)
  1. ATEDIO [Concomitant]
     Active Substance: CILNIDIPINE\VALSARTAN
     Dosage: UNK
     Route: 048
  2. BUROSUMAB [Suspect]
     Active Substance: BUROSUMAB
     Indication: HEREDITARY HYPOPHOSPHATAEMIC RICKETS
     Dosage: 90 MG, 1X/4 WEEKS
     Route: 058
     Dates: start: 20200912, end: 20201107
  3. BUROSUMAB [Suspect]
     Active Substance: BUROSUMAB
     Dosage: 90 MG
     Route: 058
     Dates: start: 20210213
  4. BUROSUMAB [Suspect]
     Active Substance: BUROSUMAB
     Dosage: 90 MG, 1X/4 WEEKS
     Route: 058
     Dates: start: 20201212, end: 20210109
  5. GASTER [Concomitant]
     Active Substance: FAMOTIDINE
     Dosage: UNK
     Route: 048
  6. PHOSRIBBON [Concomitant]
     Dosage: UNK
     Route: 048
     Dates: start: 20210109

REACTIONS (1)
  - Iron deficiency anaemia [Recovering/Resolving]

NARRATIVE: CASE EVENT DATE: 20201010
